FAERS Safety Report 4993848-6 (Version None)
Quarter: 2006Q2

REPORT INFORMATION
  Report Type: 
  Country: None (occurrence: None)
  Receive Date: 20060505
  Receipt Date: 20030814
  Transmission Date: 20061013
  Serious: Yes (Hospitalization, Disabling)
  Sender: FDA-Public Use
  Company Number: US-MERCK-0308USA01614

PATIENT
  Age: 53 Year
  Sex: Male
  Weight: 90 kg

DRUGS (6)
  1. VIOXX [Suspect]
     Indication: RHEUMATOID ARTHRITIS
     Route: 048
     Dates: start: 20000404, end: 20001031
  2. COUMADIN [Concomitant]
     Route: 065
  3. [THERAPY UNSPECIFIED] [Concomitant]
     Route: 065
  4. ENBREL [Concomitant]
     Route: 058
  5. PREDNISONE [Concomitant]
     Route: 048
  6. DARVOCET [Concomitant]
     Route: 048

REACTIONS (8)
  - ANGINA UNSTABLE [None]
  - BLOOD CHOLESTEROL INCREASED [None]
  - BUNDLE BRANCH BLOCK RIGHT [None]
  - CORONARY ARTERY DISEASE [None]
  - CORONARY ARTERY REOCCLUSION [None]
  - HYPERLIPIDAEMIA [None]
  - INTERVERTEBRAL DISC PROTRUSION [None]
  - MYOCARDIAL INFARCTION [None]
